FAERS Safety Report 9638266 (Version 2)
Quarter: 2014Q1

REPORT INFORMATION
  Report Type: Spontaneous
  Country: FR (occurrence: FR)
  Receive Date: 20131022
  Receipt Date: 20140220
  Transmission Date: 20141002
  Serious: Yes (Other)
  Sender: FDA-Public Use
  Company Number: FR-ASTRAZENECA-2013SE76711

PATIENT
  Age: 64 Year
  Sex: Male

DRUGS (13)
  1. TENORMINE [Suspect]
     Indication: CORONARY ARTERY DISEASE
     Route: 048
  2. INEXIUM [Suspect]
     Indication: PROPHYLAXIS
     Route: 048
  3. CRESTOR [Suspect]
     Indication: HYPERCHOLESTEROLAEMIA
     Route: 048
  4. EFFEXOR [Suspect]
     Indication: DEPRESSION
     Route: 048
     Dates: start: 201306, end: 201308
  5. CORVASAL [Suspect]
     Indication: CORONARY ARTERY DISEASE
     Route: 048
     Dates: end: 201306
  6. CORVASAL [Suspect]
     Indication: CORONARY ARTERY DISEASE
     Route: 048
     Dates: start: 201306
  7. EZETROL [Concomitant]
  8. PLAVIX [Concomitant]
  9. IMOVANE [Concomitant]
  10. LAMALINE [Concomitant]
  11. AERIUS [Concomitant]
  12. GAVISCON [Concomitant]
  13. KARDEGIC [Concomitant]

REACTIONS (1)
  - Cutaneous lupus erythematosus [Unknown]
